FAERS Safety Report 21769469 (Version 2)
Quarter: 2023Q1

REPORT INFORMATION
  Report Type: Report from Study
  Country: NL (occurrence: NL)
  Receive Date: 20221223
  Receipt Date: 20230109
  Transmission Date: 20230417
  Serious: Yes (Death, Other)
  Sender: FDA-Public Use
  Company Number: NL-AstraZeneca-2022A412596

PATIENT
  Age: 0 Year
  Sex: Male
  Weight: 5 kg

DRUGS (5)
  1. SYNAGIS [Suspect]
     Active Substance: PALIVIZUMAB
     Indication: Non-compaction cardiomyopathy
     Dates: start: 20221011, end: 202212
  2. MORPHINE [Concomitant]
     Active Substance: MORPHINE
     Dosage: 0.1MG/ML CASSETTE 1
  3. MIDAZOLAM [Concomitant]
     Active Substance: MIDAZOLAM
     Dosage: 1 MG/ML CASSETTE
  4. SPIRONOLACTONE [Concomitant]
     Active Substance: SPIRONOLACTONE
     Dosage: TABL 12.5MG
  5. FUROSEMIDE DRANK [Concomitant]
     Dosage: TABL 12.5MG

REACTIONS (2)
  - Non-compaction cardiomyopathy [Fatal]
  - Barth syndrome [Fatal]

NARRATIVE: CASE EVENT DATE: 20221201
